FAERS Safety Report 8335827-7 (Version None)
Quarter: 2012Q2

REPORT INFORMATION
  Report Type: 
  Country: None (occurrence: None)
  Receive Date: 20120501
  Receipt Date: 20120501
  Transmission Date: 20120825
  Serious: Yes (Hospitalization)
  Sender: FDA-Public Use
  Company Number: None

PATIENT
  Age: 59 Year
  Sex: Female
  Weight: 87.4 kg

DRUGS (16)
  1. DILAUDID [Suspect]
     Indication: VIITH NERVE PARALYSIS
     Dosage: ONCE IV  RECENT
     Route: 042
  2. AMBIEN [Suspect]
     Indication: INSOMNIA
     Dosage: 10MG ONCE PO RECENT
     Route: 048
  3. METOPROLOL TARTRATE [Concomitant]
  4. SINGULAIR [Concomitant]
  5. NEXIUM [Concomitant]
  6. VITAMIN D [Concomitant]
  7. OXYCODONE HCL [Concomitant]
  8. FELODIPINE [Concomitant]
  9. ISOPHANE INSULIN [Concomitant]
  10. LIDODERM [Concomitant]
  11. SKELAXIN [Concomitant]
  12. VIT C [Concomitant]
  13. MAG OX [Concomitant]
  14. FISH OIL [Concomitant]
  15. REGULAR INSULIN [Concomitant]
  16. HUMULIN INSULIN [Concomitant]

REACTIONS (1)
  - ENCEPHALOPATHY [None]
